FAERS Safety Report 10259838 (Version 1)
Quarter: 2014Q2

REPORT INFORMATION
  Report Type: Spontaneous
  Country: US (occurrence: US)
  Receive Date: 20140625
  Receipt Date: 20140625
  Transmission Date: 20141212
  Serious: No
  Sender: FDA-Public Use
  Company Number: US-B.I. PHARMACEUTICALS,INC./RIDGEFIELD-2014-BI-27620BP

PATIENT
  Age: 25 Year
  Sex: Male
  Weight: 77 kg

DRUGS (2)
  1. VIRAMUNE [Suspect]
     Indication: HIV INFECTION
     Dosage: 400 MG
     Route: 048
     Dates: start: 201405
  2. TRIZIVIR [Concomitant]
     Indication: HIV INFECTION
     Dosage: 300 MG
     Route: 048

REACTIONS (2)
  - Muscle spasms [Not Recovered/Not Resolved]
  - Tremor [Not Recovered/Not Resolved]
